FAERS Safety Report 24137262 (Version 1)
Quarter: 2024Q3

REPORT INFORMATION
  Report Type: Spontaneous
  Country: CA (occurrence: CA)
  Receive Date: 20240725
  Receipt Date: 20240725
  Transmission Date: 20241017
  Serious: Yes (Other)
  Sender: SANOFI AVENTIS
  Company Number: CA-BoehringerIngelheim-2024-BI-039974

PATIENT
  Age: 76 Year
  Sex: Male
  Weight: 74.84 kg

DRUGS (1)
  1. FLOMAX [Suspect]
     Active Substance: TAMSULOSIN HYDROCHLORIDE
     Indication: Prostatism
     Dosage: 0.8 MG, QD
     Route: 048

REACTIONS (2)
  - Haematuria [Not Recovered/Not Resolved]
  - Off label use [Unknown]
